FAERS Safety Report 16019730 (Version 3)
Quarter: 2019Q2

REPORT INFORMATION
  Report Type: Spontaneous
  Country: ES (occurrence: ES)
  Receive Date: 20190228
  Receipt Date: 20190410
  Transmission Date: 20190711
  Serious: Yes (Hospitalization, Other)
  Sender: FDA-Public Use
  Company Number: PHBS2004ES11064

PATIENT
  Age: 26 Year
  Sex: Female

DRUGS (3)
  1. CARBAMAZEPINE. [Suspect]
     Active Substance: CARBAMAZEPINE
     Indication: PARTIAL SEIZURES WITH SECONDARY GENERALISATION
     Dosage: 200 MG, Q12H
     Route: 065
  2. PHENYTOIN SODIUM. [Suspect]
     Active Substance: PHENYTOIN SODIUM
     Indication: SEIZURE
     Dosage: 100 MG, Q8H
     Route: 065
     Dates: start: 200102
  3. VALPROIC ACID. [Suspect]
     Active Substance: VALPROIC ACID
     Indication: SEIZURE
     Dosage: 500 MG, Q8H
     Route: 065

REACTIONS (21)
  - Rash generalised [Recovered/Resolved]
  - Blood urea increased [Recovered/Resolved]
  - Drug reaction with eosinophilia and systemic symptoms [Recovered/Resolved]
  - Condition aggravated [Recovered/Resolved]
  - Proteinuria [Recovered/Resolved]
  - Oliguria [Recovered/Resolved]
  - Hypertension [Recovered/Resolved]
  - Pruritus generalised [Recovered/Resolved]
  - Eosinophilia [Recovered/Resolved]
  - Acute kidney injury [Recovered/Resolved]
  - Blood creatinine increased [Recovered/Resolved]
  - Pruritus [Recovered/Resolved]
  - Face oedema [Recovered/Resolved]
  - General physical health deterioration [Recovered/Resolved]
  - Transaminases increased [Recovered/Resolved]
  - Tubulointerstitial nephritis [Recovered/Resolved]
  - Rash [Recovered/Resolved]
  - Pyrexia [Recovered/Resolved]
  - Leukocytosis [Recovered/Resolved]
  - Acute generalised exanthematous pustulosis [Recovered/Resolved]
  - Blood pressure increased [Recovered/Resolved]
